FAERS Safety Report 6386666-8 (Version None)
Quarter: 2009Q4

REPORT INFORMATION
  Report Type: 
  Country: None (occurrence: None)
  Receive Date: 20091002
  Receipt Date: 20090929
  Transmission Date: 20100525
  Serious: Yes (Death)
  Sender: FDA-Public Use
  Company Number: IT-ROCHE-659527

PATIENT
  Sex: Female
  Weight: 46 kg

DRUGS (3)
  1. CAPECITABINE [Suspect]
     Dosage: FREQUENCY: 14 DAYS/Q3W
     Route: 048
     Dates: start: 20090325
  2. BEVACIZUMAB [Suspect]
     Route: 042
     Dates: start: 20090325
  3. OXALIPLATIN [Suspect]
     Dosage: FORM: INFUSION.
     Route: 042
     Dates: start: 20090325

REACTIONS (1)
  - MYOCARDIAL INFARCTION [None]
